FAERS Safety Report 5463003-4 (Version None)
Quarter: 2007Q3

REPORT INFORMATION
  Report Type: 
  Country: None (occurrence: None)
  Receive Date: 20070918
  Receipt Date: 20070918
  Transmission Date: 20080115
  Serious: Yes (Other)
  Sender: FDA-Public Use
  Company Number: None

PATIENT
  Age: 75 Year
  Sex: Female
  Weight: 68.0396 kg

DRUGS (1)
  1. KETOPROFEN [Suspect]
     Indication: ARTHRITIS
     Dosage: CUTANEOUS
     Route: 003
     Dates: start: 20050606, end: 20050707

REACTIONS (1)
  - SCHAMBERG'S DISEASE [None]
